FAERS Safety Report 4774906-8 (Version None)
Quarter: 2005Q3

REPORT INFORMATION
  Report Type: 
  Country: None (occurrence: None)
  Receive Date: 20050921
  Receipt Date: 20050809
  Transmission Date: 20060218
  Serious: No
  Sender: FDA-Public Use
  Company Number: PHBS2005JP11632

PATIENT
  Age: 43 Year
  Sex: Male

DRUGS (3)
  1. TEGRETOL [Suspect]
     Indication: NEUROPATHY PERIPHERAL
     Dosage: 200 MG, UNK
     Route: 048
     Dates: start: 20050705, end: 20050808
  2. CYANOCOBALAMIN [Concomitant]
     Indication: NEUROPATHY PERIPHERAL
     Dosage: 1500 MG, UNK
     Route: 048
     Dates: start: 20050705
  3. NABUTOPIN [Concomitant]
     Indication: NEUROPATHY PERIPHERAL
     Dosage: 3.6 IU, UNK
     Route: 042
     Dates: start: 20050705

REACTIONS (1)
  - DYSGEUSIA [None]
